FAERS Safety Report 24379451 (Version 1)
Quarter: 2024Q3

REPORT INFORMATION
  Report Type: Spontaneous
  Country: CN (occurrence: CN)
  Receive Date: 20240930
  Receipt Date: 20240930
  Transmission Date: 20241017
  Serious: Yes (Life-Threatening, Hospitalization, Other)
  Sender: SANOFI AVENTIS
  Company Number: CN-SA-2024SA280196

PATIENT
  Age: 53 Year
  Sex: Female

DRUGS (5)
  1. RIFAMPIN [Suspect]
     Active Substance: RIFAMPIN
     Indication: Pulmonary tuberculosis
     Dosage: UNK
     Route: 065
     Dates: start: 20230913
  2. LEVOFLOXACIN [Suspect]
     Active Substance: LEVOFLOXACIN
     Indication: Pulmonary tuberculosis
     Dosage: UNK
     Route: 065
  3. ISONIAZID [Concomitant]
     Active Substance: ISONIAZID
     Dosage: UNK
     Dates: start: 20230913
  4. ETHAMBUTOL [Concomitant]
     Active Substance: ETHAMBUTOL HYDROCHLORIDE
     Dosage: UNK
     Dates: start: 20230913
  5. PYRAZINAMIDE [Concomitant]
     Active Substance: PYRAZINAMIDE
     Dosage: UNK
     Dates: start: 20230913

REACTIONS (1)
  - Haemophagocytic lymphohistiocytosis [Unknown]
